FAERS Safety Report 5531747-1 (Version None)
Quarter: 2007Q4

REPORT INFORMATION
  Report Type: 
  Country: None (occurrence: None)
  Receive Date: 20071203
  Receipt Date: 20071127
  Transmission Date: 20080405
  Serious: Yes (Life-Threatening, Hospitalization)
  Sender: FDA-Public Use
  Company Number: JP-ASTRAZENECA-2007AP06151

PATIENT
  Age: 21707 Day
  Sex: Male
  Weight: 59 kg

DRUGS (8)
  1. CRESTOR [Suspect]
     Indication: HYPERLIPIDAEMIA
     Route: 048
     Dates: start: 20070809, end: 20070814
  2. WARFARIN SODIUM [Concomitant]
     Route: 048
     Dates: start: 20051101
  3. LASIX [Concomitant]
     Route: 048
     Dates: start: 20070701
  4. ALOSITOL [Concomitant]
     Route: 048
     Dates: start: 20070701
  5. ARTIST [Concomitant]
     Route: 048
     Dates: start: 20070701
  6. KALIMATE [Concomitant]
     Route: 054
     Dates: start: 20070807, end: 20070810
  7. MEXITIL [Concomitant]
     Route: 048
     Dates: start: 20070810, end: 20070816
  8. ZESTRIL [Concomitant]
     Route: 048
     Dates: start: 20070801

REACTIONS (2)
  - ENDOCARDITIS [None]
  - RASH [None]
